FAERS Safety Report 8596168 (Version 6)
Quarter: 2014Q2

REPORT INFORMATION
  Report Type: Spontaneous
  Country: US (occurrence: US)
  Receive Date: 20120605
  Receipt Date: 20140521
  Transmission Date: 20141212
  Serious: Yes (Hospitalization, Disabling)
  Sender: FDA-Public Use
  Company Number: US-ASTRAZENECA-2012SE35055

PATIENT
  Age: 60 Year
  Sex: Female
  Weight: 68.5 kg

DRUGS (30)
  1. NEXIUM [Suspect]
     Indication: GASTROOESOPHAGEAL REFLUX DISEASE
     Dosage: DAILY
     Route: 048
     Dates: start: 2000
  2. NEXIUM [Suspect]
     Indication: GASTROOESOPHAGEAL REFLUX DISEASE
     Route: 048
     Dates: start: 2002, end: 2005
  3. NEXIUM [Suspect]
     Indication: GASTROOESOPHAGEAL REFLUX DISEASE
     Route: 048
     Dates: start: 20060530
  4. NEXIUM [Suspect]
     Indication: GASTROOESOPHAGEAL REFLUX DISEASE
     Route: 048
     Dates: start: 20060718
  5. PEPTO BISMOL [Concomitant]
  6. ENDOCET [Concomitant]
     Indication: PAIN
  7. CYMBALTA [Concomitant]
     Indication: PAIN
  8. XOPENEX [Concomitant]
     Indication: DYSPNOEA
  9. PHENERGAN [Concomitant]
     Indication: GASTRIC DISORDER
  10. SPIRIVA [Concomitant]
     Indication: DYSPNOEA
  11. ADVAIR DISKUS [Concomitant]
     Indication: DYSPNOEA
  12. SIMVASTATIN [Concomitant]
     Dates: start: 20101201
  13. ROPINIROLE [Concomitant]
     Dates: start: 20101201
  14. WARFARIN [Concomitant]
  15. HYDROCHLOROTHIAZIDED [Concomitant]
  16. ATENOLOL [Concomitant]
     Dates: start: 20050405
  17. VERAPAMIL [Concomitant]
     Dates: start: 20060530
  18. COUMADIN [Concomitant]
     Indication: ATRIAL FIBRILLATION
  19. DIGOXIN [Concomitant]
  20. NEBIVOLOL [Concomitant]
  21. COZAAR [Concomitant]
     Dates: start: 20040830
  22. DOXYCYCLINE [Concomitant]
     Dates: start: 20040519
  23. DIVON HCT [Concomitant]
     Dosage: 160/12.5
     Dates: start: 20090804
  24. FLEXERIL [Concomitant]
     Dates: start: 20110727
  25. NAPROXEN [Concomitant]
     Dates: start: 20110727
  26. KEFLEX [Concomitant]
     Dates: start: 20110727
  27. ALENDRONATE [Concomitant]
     Dates: start: 20130506
  28. BYSTOLIC [Concomitant]
     Dates: start: 20121003
  29. PREDNISONE [Concomitant]
     Dates: start: 20130103
  30. RANITIDINE [Concomitant]
     Dates: start: 20060530

REACTIONS (15)
  - Tendonitis [Unknown]
  - Myocardial infarction [Unknown]
  - Carpal tunnel syndrome [Unknown]
  - Thrombosis [Unknown]
  - Osteomyelitis [Unknown]
  - Lower limb fracture [Unknown]
  - Fibula fracture [Unknown]
  - Fall [Unknown]
  - Tibia fracture [Unknown]
  - Ankle fracture [Unknown]
  - Osteoporosis [Unknown]
  - Multiple fractures [Unknown]
  - Clavicle fracture [Unknown]
  - Arthritis [Unknown]
  - Chronic obstructive pulmonary disease [Unknown]
